FAERS Safety Report 9393871 (Version 2)
Quarter: 2013Q4

REPORT INFORMATION
  Report Type: Spontaneous
  Country: GB (occurrence: GB)
  Receive Date: 20130710
  Receipt Date: 20131113
  Transmission Date: 20140711
  Serious: Yes (Hospitalization, Other)
  Sender: FDA-Public Use
  Company Number: GB-TEVA-416818ISR

PATIENT
  Age: 48 Year
  Sex: Male

DRUGS (21)
  1. QUETIAPINE [Suspect]
     Indication: BIPOLAR DISORDER
     Route: 048
     Dates: start: 20130522
  2. QUETIAPINE [Suspect]
     Dosage: AT NIGHT
     Route: 048
     Dates: end: 20130614
  3. QUETIAPINE [Suspect]
     Route: 048
     Dates: end: 20130616
  4. PREGABALIN [Concomitant]
  5. LAMOTRIGINE [Concomitant]
     Dosage: 250 MILLIGRAM DAILY; 100 MG MORNING, 150 MG AT NIGHT
  6. TOLTERODINE [Concomitant]
  7. NYSTATIN [Concomitant]
  8. CHLORHEXIDINE [Concomitant]
  9. TRAMADOL [Concomitant]
     Dosage: 200 MILLIGRAM DAILY; AS REQUIRED
  10. ATORVASTATIN [Concomitant]
     Dosage: 20 MILLIGRAM DAILY;
  11. IBUPROFEN [Concomitant]
     Dosage: 1200 MILLIGRAM DAILY; AS REQUIRED
  12. GABAPENTIN [Concomitant]
     Dosage: 300 MILLIGRAM DAILY; AS REQUIRED
  13. ASPIRIN [Concomitant]
     Dosage: 75 MILLIGRAM DAILY;
  14. ANGITIL XL [Concomitant]
     Dosage: 2 DOSAGE FORMS DAILY;
  15. OMEPRAZOL [Concomitant]
     Dosage: 40 MILLIGRAM DAILY;
  16. SALMETEROL [Concomitant]
     Dosage: EAR WASH, EMULSION
  17. FLUTICASONE [Concomitant]
     Dosage: EAR WASH, EMULSION
  18. MONTELUKAST [Concomitant]
     Dosage: 10 MILLIGRAM DAILY; AT NIGHT
  19. MOMETASONE [Concomitant]
  20. SALBUTAMOL [Concomitant]
  21. ZOPICLONE [Concomitant]

REACTIONS (7)
  - Muscular weakness [Recovering/Resolving]
  - Dysarthria [Recovering/Resolving]
  - Facial paresis [Recovering/Resolving]
  - Dizziness [Unknown]
  - Vertigo [Unknown]
  - Vision blurred [Unknown]
  - Dysarthria [Unknown]
